FAERS Safety Report 14091984 (Version 1)
Quarter: 2017Q4

REPORT INFORMATION
  Report Type: Spontaneous
  Country: US (occurrence: None)
  Receive Date: 20171014
  Receipt Date: 20171014
  Transmission Date: 20180321
  Serious: Yes (Hospitalization)
  Sender: FDA-Public Use
  Company Number: None

PATIENT
  Age: 76 Year
  Sex: Female
  Weight: 72.1 kg

DRUGS (4)
  1. MERCAPTOPURINE. [Suspect]
     Active Substance: MERCAPTOPURINE
     Dates: end: 20170120
  2. METHOTREXATE. [Suspect]
     Active Substance: METHOTREXATE
     Dates: end: 20170119
  3. VINCRISTINE SULFATE. [Suspect]
     Active Substance: VINCRISTINE SULFATE
     Dates: end: 20161229
  4. PREDNISONE. [Suspect]
     Active Substance: PREDNISONE
     Dates: end: 20170102

REACTIONS (11)
  - Dyspnoea exertional [None]
  - Cholecystitis [None]
  - Dizziness [None]
  - Staphylococcus test positive [None]
  - Headache [None]
  - Vomiting [None]
  - Blood culture positive [None]
  - Cholelithiasis [None]
  - Colitis [None]
  - Nausea [None]
  - Fatigue [None]

NARRATIVE: CASE EVENT DATE: 20170104
